FAERS Safety Report 23037565 (Version 1)
Quarter: 2023Q4

REPORT INFORMATION
  Report Type: Spontaneous
  Country: US (occurrence: None)
  Receive Date: 20231005
  Receipt Date: 20231005
  Transmission Date: 20240109
  Serious: No
  Sender: FDA-Public Use
  Company Number: None

PATIENT
  Age: 49 Year
  Sex: Female
  Weight: 70.2 kg

DRUGS (7)
  1. HERBALS\MITRAGYNINE [Suspect]
     Active Substance: HERBALS\MITRAGYNINE
     Indication: Disturbance in attention
     Dates: start: 20231004, end: 20231004
  2. Oral birth control [Concomitant]
  3. DICLOFENAC [Concomitant]
     Active Substance: DICLOFENAC
  4. OMEPRAZOLE [Concomitant]
     Active Substance: OMEPRAZOLE
  5. GLUCOSAMINE [Concomitant]
     Active Substance: GLUCOSAMINE
  6. GINKGO [Concomitant]
     Active Substance: GINKGO
  7. CURCUMIN [Concomitant]
     Active Substance: CURCUMIN

REACTIONS (7)
  - Hot flush [None]
  - Feeling abnormal [None]
  - Malaise [None]
  - Nausea [None]
  - Retching [None]
  - Vomiting [None]
  - Dehydration [None]

NARRATIVE: CASE EVENT DATE: 20231004
